FAERS Safety Report 9908971 (Version 4)
Quarter: 2015Q1

REPORT INFORMATION
  Report Type: Report from Study
  Country: US (occurrence: US)
  Receive Date: 20140219
  Receipt Date: 20150309
  Transmission Date: 20150721
  Serious: No
  Sender: FDA-Public Use
  Company Number: US-VERTEX PHARMACEUTICALS INC-2014-000623

PATIENT
  Age: 18 Year
  Sex: Female

DRUGS (7)
  1. ZENPEP [Concomitant]
     Active Substance: PANCRELIPASE\PANCRELIPASE AMYLASE\PANCRELIPASE LIPASE\PANCRELIPASE PROTEASE
  2. PULMOZYME [Concomitant]
     Active Substance: DORNASE ALFA
  3. ALBUTEROL. [Concomitant]
     Active Substance: ALBUTEROL
  4. ADVAIR HFA [Concomitant]
     Active Substance: FLUTICASONE PROPIONATE\SALMETEROL XINAFOATE
  5. IVACAFTOR [Suspect]
     Active Substance: IVACAFTOR
     Indication: CYSTIC FIBROSIS
     Dosage: 150 MG, BID
     Route: 048
     Dates: start: 20120402
  6. HYPERTONIC SALINE SOLUTION [Concomitant]
     Active Substance: SODIUM CHLORIDE
  7. AQUADEKS [Concomitant]

REACTIONS (10)
  - Pain in extremity [Unknown]
  - Nausea [Unknown]
  - Ovarian cyst [Recovered/Resolved]
  - Nerve compression [Unknown]
  - Back pain [Unknown]
  - Pseudomonas test positive [Not Recovered/Not Resolved]
  - Arthralgia [Recovering/Resolving]
  - Pain of skin [Unknown]
  - Papule [Unknown]
  - Tendonitis [Unknown]

NARRATIVE: CASE EVENT DATE: 20140120
